FAERS Safety Report 20724173 (Version 1)
Quarter: 2022Q2

REPORT INFORMATION
  Report Type: Spontaneous
  Country: US (occurrence: US)
  Receive Date: 20220419
  Receipt Date: 20220419
  Transmission Date: 20220720
  Serious: No
  Sender: FDA-Public Use
  Company Number: US-TARO-2021TAR00898

PATIENT

DRUGS (1)
  1. MICONAZOLE NITRATE [Interacting]
     Active Substance: MICONAZOLE NITRATE
     Indication: Fungal infection
     Dosage: UNK
     Route: 065

REACTIONS (4)
  - Headache [Unknown]
  - Pruritus [Unknown]
  - Burning sensation [Unknown]
  - Nausea [Unknown]
